FAERS Safety Report 8831723 (Version 1)
Quarter: 2012Q4

REPORT INFORMATION
  Report Type: 
  Country: CA (occurrence: US)
  Receive Date: 20121009
  Receipt Date: 20121009
  Transmission Date: 20130627
  Serious: No
  Sender: FDA-Public Use
  Company Number: CA-ASTRAZENECA-2012SE75456

PATIENT
  Age: 28 Year
  Sex: Female

DRUGS (1)
  1. ZOMIG [Suspect]
     Indication: MIGRAINE
     Route: 045

REACTIONS (1)
  - Migraine [Recovered/Resolved]
